FAERS Safety Report 16497514 (Version 1)
Quarter: 2019Q2

REPORT INFORMATION
  Report Type: Spontaneous
  Country: HU (occurrence: HU)
  Receive Date: 20190628
  Receipt Date: 20190628
  Transmission Date: 20190711
  Serious: Yes (Hospitalization)
  Sender: FDA-Public Use
  Company Number: HU-ALLERGAN-1926578US

PATIENT
  Sex: Female

DRUGS (1)
  1. CEFTAROLINE FOSAMIL - BP [Suspect]
     Active Substance: CEFTAROLINE FOSAMIL
     Indication: ENDOCARDITIS
     Dosage: 600 MG, 3X/DAY
     Route: 042

REACTIONS (5)
  - Pleural effusion [Unknown]
  - Pregnancy [Unknown]
  - Off label use [Unknown]
  - Lung neoplasm malignant [Unknown]
  - Dyspnoea [Unknown]
